FAERS Safety Report 20964007 (Version 2)
Quarter: 2022Q2

REPORT INFORMATION
  Report Type: Spontaneous
  Country: FR (occurrence: FR)
  Receive Date: 20220615
  Receipt Date: 20220617
  Transmission Date: 20220721
  Serious: Yes (Hospitalization)
  Sender: FDA-Public Use
  Company Number: FR-JNJFOC-20220610799

PATIENT
  Age: 74 Year
  Sex: Male

DRUGS (1)
  1. DARZALEX [Suspect]
     Active Substance: DARATUMUMAB
     Indication: Amyloidosis
     Dosage: LAST INJECTION: 25-MAY-2022
     Route: 058
     Dates: start: 20220301

REACTIONS (3)
  - COVID-19 [Recovered/Resolved]
  - Respiratory distress [Unknown]
  - Lung infiltration [Unknown]

NARRATIVE: CASE EVENT DATE: 20220526
